FAERS Safety Report 7223454-4 (Version None)
Quarter: 2011Q1

REPORT INFORMATION
  Report Type: 
  Country: None (occurrence: None)
  Receive Date: 20110112
  Receipt Date: 20100416
  Transmission Date: 20110831
  Serious: No
  Sender: FDA-Public Use
  Company Number: US-ALLERGAN-200507138

PATIENT
  Age: 77 Year
  Sex: Female
  Weight: 64.545 kg

DRUGS (13)
  1. PROVERA [Concomitant]
     Indication: PRODUCT USED FOR UNKNOWN INDICATION
     Dosage: DOSE QUANTITY: 5, DOSE UNIT: MG
     Route: 065
  2. ATENOLOL [Concomitant]
     Indication: PRODUCT USED FOR UNKNOWN INDICATION
     Dosage: 25MG, QHS
     Route: 065
  3. RESTASIS [Suspect]
     Indication: DRY EYE
     Route: 047
     Dates: start: 20050601, end: 20050801
  4. PREMARIN [Concomitant]
     Indication: PRODUCT USED FOR UNKNOWN INDICATION
     Dosage: DOSE QUANTITY: .625, QD
     Route: 065
  5. TIMOLOL [Concomitant]
     Indication: PRODUCT USED FOR UNKNOWN INDICATION
  6. HYDROCHLOROTHIAZIDE [Concomitant]
     Indication: PRODUCT USED FOR UNKNOWN INDICATION
     Dosage: 12.5MG, QAM
     Route: 065
  7. SYSTANE [Concomitant]
     Indication: PRODUCT USED FOR UNKNOWN INDICATION
  8. REFRESH LIQUIGEL OPHTHALMIC [Concomitant]
     Indication: PRODUCT USED FOR UNKNOWN INDICATION
  9. NEXIUM [Concomitant]
     Indication: BLOOD CHOLESTEROL
     Dosage: 40MG, QAM
     Route: 065
  10. REFRESH TEARS [Concomitant]
     Indication: PRODUCT USED FOR UNKNOWN INDICATION
  11. COZAAR [Concomitant]
     Indication: BLOOD PRESSURE
     Dosage: 50MG, BID
     Route: 065
  12. HYPOTEARS DDPF [Concomitant]
     Indication: PRODUCT USED FOR UNKNOWN INDICATION
  13. REFRESH ENDURA LUBRICANT EYE DROPS [Concomitant]
     Indication: PRODUCT USED FOR UNKNOWN INDICATION

REACTIONS (8)
  - WEIGHT DECREASED [None]
  - NAUSEA [None]
  - EYE DISORDER [None]
  - DECREASED APPETITE [None]
  - DYSPEPSIA [None]
  - DRUG INEFFECTIVE [None]
  - ORAL DISCOMFORT [None]
  - STOMATITIS [None]
